FAERS Safety Report 6296533-6 (Version None)
Quarter: 2009Q3

REPORT INFORMATION
  Report Type: 
  Country: None (occurrence: None)
  Receive Date: 20090804
  Receipt Date: 20090728
  Transmission Date: 20100115
  Serious: Yes (Other)
  Sender: FDA-Public Use
  Company Number: B0586614A

PATIENT

DRUGS (2)
  1. SERETIDE [Suspect]
     Indication: DRUG USE FOR UNKNOWN INDICATION
     Route: 055
  2. ANTIMYCOTIC (UNSPECIFIED) [Concomitant]
     Route: 065

REACTIONS (1)
  - HAEMORRHAGIC DIATHESIS [None]
